FAERS Safety Report 8385908-7 (Version None)
Quarter: 2012Q2

REPORT INFORMATION
  Report Type: 
  Country: None (occurrence: None)
  Receive Date: 20120523
  Receipt Date: 20120511
  Transmission Date: 20120825
  Serious: Yes (Hospitalization)
  Sender: FDA-Public Use
  Company Number: 2012-2251

PATIENT
  Age: 4 Year
  Sex: Female
  Weight: 14.9 kg

DRUGS (3)
  1. PEDIA-LAX BIBER GUMMIES (ALL OTHER THERAPEUTIC PRODUCTS) [Concomitant]
  2. PEDIA-LYTE (PEDIALYTE) [Concomitant]
  3. INCRELEX [Suspect]
     Indication: FAILURE TO THRIVE
     Dosage: 32 UNITS (16 UNITS, 2 IN 1 D)
     Dates: start: 20090101

REACTIONS (2)
  - HYPERHIDROSIS [None]
  - TONSILLITIS [None]
